FAERS Safety Report 5106681-1 (Version None)
Quarter: 2006Q3

REPORT INFORMATION
  Report Type: 
  Country: None (occurrence: None)
  Receive Date: 20060913
  Receipt Date: 20060823
  Transmission Date: 20061208
  Serious: Yes (Other)
  Sender: FDA-Public Use
  Company Number: FR200607004960

PATIENT
  Age: 63 Year
  Sex: Female

DRUGS (3)
  1. HUMALOG [Suspect]
     Dosage: SEE IMAGE
     Route: 058
  2. LANTUS [Concomitant]
  3. LEVOTHROX (LEVOTHYROXINE SODIUM) [Concomitant]

REACTIONS (4)
  - DEVICE MALFUNCTION [None]
  - HYPOGLYCAEMIA [None]
  - MALAISE [None]
  - PHARMACEUTICAL PRODUCT COMPLAINT [None]
